FAERS Safety Report 5799876-5 (Version None)
Quarter: 2008Q3

REPORT INFORMATION
  Report Type: 
  Country: None (occurrence: None)
  Receive Date: 20080701
  Receipt Date: 20080616
  Transmission Date: 20090109
  Serious: Yes (Death, Hospitalization)
  Sender: FDA-Public Use
  Company Number: 2008AL007213

PATIENT
  Sex: Male

DRUGS (1)
  1. DIGOXIN [Suspect]
     Indication: ATRIAL FIBRILLATION
     Dosage: 0.25 MG, PO
     Route: 048
     Dates: start: 20080313, end: 20080413

REACTIONS (12)
  - ABNORMAL BEHAVIOUR [None]
  - CONFUSIONAL STATE [None]
  - DIARRHOEA [None]
  - HALLUCINATION, AUDITORY [None]
  - HALLUCINATION, VISUAL [None]
  - HYPERSOMNIA [None]
  - HYPOTENSION [None]
  - INCOHERENT [None]
  - INCONTINENCE [None]
  - LOGORRHOEA [None]
  - SOMNOLENCE [None]
  - THINKING ABNORMAL [None]
